FAERS Safety Report 5716618-X (Version None)
Quarter: 2008Q2

REPORT INFORMATION
  Report Type: 
  Country: None (occurrence: None)
  Receive Date: 20080424
  Receipt Date: 20080410
  Transmission Date: 20081010
  Serious: Yes (Other)
  Sender: FDA-Public Use
  Company Number: US-AMGEN-US274079

PATIENT
  Sex: Male
  Weight: 1.93 kg

DRUGS (6)
  1. ARANESP [Suspect]
     Indication: RENAL FAILURE CHRONIC
     Route: 064
     Dates: start: 20051001
  2. PROCRIT [Suspect]
     Route: 064
  3. UNSPECIFIED ANTIHYPERTENSIVE AGENT [Concomitant]
     Route: 064
  4. VITAMIN TAB [Concomitant]
     Route: 064
  5. IRON [Concomitant]
     Route: 064
  6. PREDNISONE [Concomitant]
     Route: 064

REACTIONS (3)
  - FOETAL DISTRESS SYNDROME [None]
  - FOETAL GROWTH RETARDATION [None]
  - JAUNDICE NEONATAL [None]
